FAERS Safety Report 19040787 (Version 1)
Quarter: 2021Q1

REPORT INFORMATION
  Report Type: Spontaneous
  Country: DE (occurrence: DE)
  Receive Date: 20210323
  Receipt Date: 20210323
  Transmission Date: 20210420
  Serious: Yes (Hospitalization, Other)
  Sender: FDA-Public Use
  Company Number: DE-NOVOPROD-795232

PATIENT
  Age: 16 Year
  Weight: 96 kg

DRUGS (3)
  1. L?THYROXIN [Concomitant]
     Active Substance: LEVOTHYROXINE SODIUM
     Indication: HYPOTHYROIDISM
     Dosage: 75 ???G
     Route: 048
  2. NOVORAPID [Suspect]
     Active Substance: INSULIN ASPART
     Indication: TYPE 1 DIABETES MELLITUS
     Dosage: UNK
     Route: 058
  3. SIMVASTATIN. [Concomitant]
     Active Substance: SIMVASTATIN
     Indication: TYPE IIB HYPERLIPIDAEMIA
     Dosage: 20 MG
     Route: 048

REACTIONS (7)
  - Hyperglycaemia [Unknown]
  - Diabetes mellitus inadequate control [Unknown]
  - Abdominal pain [Unknown]
  - Dizziness [Unknown]
  - Feeling jittery [Unknown]
  - Nausea [Unknown]
  - Diarrhoea [Unknown]

NARRATIVE: CASE EVENT DATE: 20190103
